FAERS Safety Report 12806397 (Version 1)
Quarter: 2016Q4

REPORT INFORMATION
  Report Type: Spontaneous
  Country: US (occurrence: US)
  Receive Date: 20161004
  Receipt Date: 20161004
  Transmission Date: 20170207
  Serious: Yes (Other)
  Sender: FDA-Public Use
  Company Number: None

PATIENT
  Age: 44 Year
  Sex: Female
  Weight: 62.8 kg

DRUGS (1)
  1. ISOVUE 300 [Suspect]
     Active Substance: IOPAMIDOL
     Indication: IMAGING PROCEDURE
     Dosage: 130 ML X1 DOSE IV VIA POWER INJECTOR
     Route: 042
     Dates: start: 20160208

REACTIONS (1)
  - Pruritus [None]

NARRATIVE: CASE EVENT DATE: 20160208
